FAERS Safety Report 8078283-9 (Version None)
Quarter: 2012Q1

REPORT INFORMATION
  Report Type: 
  Country: None (occurrence: None)
  Receive Date: 20120123
  Receipt Date: 20120116
  Transmission Date: 20120608
  Serious: Yes (Death)
  Sender: FDA-Public Use
  Company Number: WAES 1112DEU00032

PATIENT
  Age: 53 Year
  Sex: Male

DRUGS (7)
  1. ANTINEOPLASTIC [Concomitant]
  2. CEFTAZIDIME [Concomitant]
  3. ACYCLOVIR [Concomitant]
  4. LINEZOLID [Concomitant]
  5. CANCIDAS [Suspect]
     Indication: LUNG INFILTRATION
     Dosage: 70 MG, DAILY, IV
     Route: 042
     Dates: start: 20100301, end: 20100301
  6. CANCIDAS [Suspect]
     Indication: ASPERGILLOSIS
     Dosage: 70 MG, DAILY, IV
     Route: 042
     Dates: start: 20100301, end: 20100301
  7. VORICONAZOLE [Concomitant]

REACTIONS (2)
  - PNEUMONIA PRIMARY ATYPICAL [None]
  - SEPTIC SHOCK [None]
